FAERS Safety Report 8901783 (Version 2)
Quarter: 2013Q1

REPORT INFORMATION
  Report Type: Spontaneous
  Country: US (occurrence: None)
  Receive Date: 20121106
  Receipt Date: 20121120
  Transmission Date: 20140127
  Serious: Yes (Other)
  Sender: FDA-Public Use
  Company Number: 2012P1062812

PATIENT
  Age: 31 Year
  Sex: Female

DRUGS (4)
  1. MYORISAN 20 MG (NO PREF. NAME) [Suspect]
     Indication: ACNE CYSTIC
     Dates: start: 20120927, end: 20121023
  2. CLARAVIS [Suspect]
     Dates: start: 20120725
  3. CLARAVIS [Suspect]
     Dates: start: 20120824
  4. OMEPRAZOLE [Concomitant]

REACTIONS (2)
  - Blood triglycerides increased [None]
  - Depression [None]
